FAERS Safety Report 4303245-4 (Version None)
Quarter: 2004Q1

REPORT INFORMATION
  Report Type: 
  Country: None (occurrence: None)
  Receive Date: 20040223
  Receipt Date: 20040213
  Transmission Date: 20041129
  Serious: Yes (Hospitalization)
  Sender: FDA-Public Use
  Company Number: 200410470EU

PATIENT
  Age: 23 Year
  Sex: Female

DRUGS (1)
  1. HYDROCORTISONE [Suspect]
     Indication: CROHN'S DISEASE
     Dosage: 500 MG/DAY IV
     Route: 042

REACTIONS (5)
  - CROHN'S DISEASE [None]
  - GRAND MAL CONVULSION [None]
  - HYPOKALAEMIA [None]
  - REACTION TO DRUG EXCIPIENT [None]
  - REACTION TO DRUG PRESERVATIVES [None]
